FAERS Safety Report 14529942 (Version 1)
Quarter: 2018Q1

REPORT INFORMATION
  Report Type: Spontaneous
  Country: US (occurrence: US)
  Receive Date: 20180214
  Receipt Date: 20180214
  Transmission Date: 20180509
  Serious: No
  Sender: FDA-Public Use
  Company Number: US-IGSA-SR10005192

PATIENT
  Age: 55 Year
  Sex: Male
  Weight: 93 kg

DRUGS (20)
  1. PROLASTIN-C [Suspect]
     Active Substance: .ALPHA.1-PROTEINASE INHIBITOR HUMAN
     Indication: ALPHA-1 ANTI-TRYPSIN DEFICIENCY
     Dosage: 5580 MG, Q.WK.
     Route: 042
     Dates: start: 20170814
  2. XANAX [Concomitant]
     Active Substance: ALPRAZOLAM
  3. ALBUTEROL                          /00139501/ [Concomitant]
     Active Substance: ALBUTEROL
  4. PREDNISONE. [Concomitant]
     Active Substance: PREDNISONE
  5. NASONEX [Concomitant]
     Active Substance: MOMETASONE FUROATE
  6. ASPIRIN                            /00002701/ [Concomitant]
     Active Substance: ASPIRIN
  7. THEOPHYLLINE [Concomitant]
     Active Substance: THEOPHYLLINE ANHYDROUS
  8. PROLASTIN-C [Suspect]
     Active Substance: .ALPHA.1-PROTEINASE INHIBITOR HUMAN
     Dosage: 60 MG/KG, Q.WK.
     Route: 042
     Dates: start: 2010
  9. ACETAMINOPHEN W/HYDROCODONE [Concomitant]
     Active Substance: ACETAMINOPHEN\HYDROCODONE
  10. MULTAQ [Concomitant]
     Active Substance: DRONEDARONE
  11. HUMALOG [Concomitant]
     Active Substance: INSULIN LISPRO
  12. FUROSEMIDE. [Concomitant]
     Active Substance: FUROSEMIDE
  13. NEXIUM [Concomitant]
     Active Substance: ESOMEPRAZOLE MAGNESIUM
  14. DILTIAZEM. [Concomitant]
     Active Substance: DILTIAZEM
  15. SINGULAIR [Concomitant]
     Active Substance: MONTELUKAST SODIUM
  16. PULMICORT TURBUHALER [Concomitant]
     Active Substance: BUDESONIDE
  17. FLONASE                            /00908302/ [Concomitant]
     Active Substance: MOMETASONE FUROATE
  18. VENTOLIN [Concomitant]
     Active Substance: ALBUTEROL SULFATE
  19. LORATADINE. [Concomitant]
     Active Substance: LORATADINE
  20. NOVOLOG [Concomitant]
     Active Substance: INSULIN ASPART

REACTIONS (3)
  - Hyperhidrosis [Recovered/Resolved]
  - Pyrexia [Recovered/Resolved]
  - Pain [Recovered/Resolved]

NARRATIVE: CASE EVENT DATE: 20170815
